FAERS Safety Report 26177275 (Version 1)
Quarter: 2025Q4

REPORT INFORMATION
  Report Type: Spontaneous
  Country: NP (occurrence: NP)
  Receive Date: 20251219
  Receipt Date: 20251219
  Transmission Date: 20260119
  Serious: Yes (Hospitalization, Other)
  Sender: MARKSANS PHARMA LIMITED
  Company Number: NP-MARKSANS PHARMA LIMITED-MPL202500122

PATIENT

DRUGS (4)
  1. METFORMIN HYDROCHLORIDE [Suspect]
     Active Substance: METFORMIN HYDROCHLORIDE
     Indication: Type 2 diabetes mellitus
     Dosage: 850 MILLIGRAM, QD (ONCE A DAY)
     Route: 065
  2. METFORMIN HYDROCHLORIDE [Suspect]
     Active Substance: METFORMIN HYDROCHLORIDE
     Dosage: 40 GRAM (INGESTED AN ESTIMATED 40 GRAM OF METFORMIN, ROUGHLY 50 TABLETS)
     Route: 048
  3. OLANZAPINE [Concomitant]
     Active Substance: OLANZAPINE
     Indication: Major depression
     Dosage: 10 MILLIGRAM, QD (ONCE A DAY)
     Route: 065
  4. FLUOXETINE [Concomitant]
     Active Substance: FLUOXETINE HYDROCHLORIDE
     Indication: Major depression
     Dosage: 20 MILLIGRAM, QD (20 MG ONCE A DAY)
     Route: 065

REACTIONS (12)
  - Acute kidney injury [Recovered/Resolved]
  - Metabolic acidosis [Recovered/Resolved]
  - Mental status changes [Recovered/Resolved]
  - Hypertension [Recovered/Resolved]
  - Lactic acidosis [Recovered/Resolved]
  - Hypoglycaemia [Recovered/Resolved]
  - Vomiting [Recovered/Resolved]
  - Diarrhoea [Recovered/Resolved]
  - Abdominal pain upper [Recovered/Resolved]
  - Dehydration [Recovered/Resolved]
  - Somnolence [Recovered/Resolved]
  - Overdose [Unknown]
